FAERS Safety Report 7206393-4 (Version None)
Quarter: 2011Q1

REPORT INFORMATION
  Report Type: 
  Country: None (occurrence: None)
  Receive Date: 20110103
  Receipt Date: 20110103
  Transmission Date: 20110831
  Serious: Yes (Death, Hospitalization, Disabling)
  Sender: FDA-Public Use
  Company Number: PHHO2008US06780

PATIENT
  Sex: Male

DRUGS (10)
  1. GLUCOPHAGE [Concomitant]
  2. AMARYL [Concomitant]
  3. LORCET-HD [Concomitant]
     Indication: NECK PAIN
  4. DURAGESIC-50 [Concomitant]
     Indication: PAIN
  5. ALBUTEROL [Concomitant]
  6. SULAR [Concomitant]
     Indication: HYPERTENSION
  7. VITAMIN B-12 [Concomitant]
     Indication: FATIGUE
  8. AFINITOR [Suspect]
     Indication: CARCINOID TUMOUR
     Dosage: 10 MG, QD
     Route: 048
     Dates: start: 20080407, end: 20080526
  9. SANDOSTATIN LAR [Suspect]
     Indication: CARCINOID SYNDROME
     Dosage: 30MG Q MONTH
     Dates: start: 20080407, end: 20080526
  10. BENICAR HCT [Concomitant]
     Indication: HYPERTENSION

REACTIONS (14)
  - MOUTH ULCERATION [None]
  - ANAEMIA [None]
  - SOMNOLENCE [None]
  - MUCOSAL INFLAMMATION [None]
  - DYSPHAGIA [None]
  - CANDIDIASIS [None]
  - VOMITING [None]
  - WEIGHT DECREASED [None]
  - DIARRHOEA [None]
  - NAUSEA [None]
  - NEOPLASM MALIGNANT [None]
  - DYSPNOEA [None]
  - DECREASED APPETITE [None]
  - ASTHENIA [None]
